FAERS Safety Report 5951112-2 (Version None)
Quarter: 2008Q4

REPORT INFORMATION
  Report Type: 
  Country: None (occurrence: None)
  Receive Date: 20081112
  Receipt Date: 20081112
  Transmission Date: 20090506
  Serious: No
  Sender: FDA-Public Use
  Company Number: None

PATIENT
  Age: 40 Year
  Sex: Female
  Weight: 59.4212 kg

DRUGS (1)
  1. KENALOG [Suspect]
     Indication: BURSITIS
     Dosage: 40 MG.
     Dates: start: 20080603, end: 20080603

REACTIONS (6)
  - ATROPHY [None]
  - ILL-DEFINED DISORDER [None]
  - IMPAIRED WORK ABILITY [None]
  - MUSCLE ATROPHY [None]
  - MUSCULAR WEAKNESS [None]
  - NERVE INJURY [None]
